FAERS Safety Report 9408104 (Version 1)
Quarter: 2013Q3

REPORT INFORMATION
  Report Type: Spontaneous
  Country: DK (occurrence: None)
  Receive Date: 20130716
  Receipt Date: 20130716
  Transmission Date: 20140515
  Serious: Yes (Death)
  Sender: FDA-Public Use
  Company Number: TPA2013A06787

PATIENT
  Age: 57 Year
  Sex: Male

DRUGS (1)
  1. LANSOPRAZOLE (LANSOPRAZOLE) [Suspect]
     Indication: DUODENAL ULCER

REACTIONS (2)
  - Cutaneous lupus erythematosus [None]
  - Rash papulosquamous [None]
